FAERS Safety Report 18334844 (Version 1)
Quarter: 2020Q4

REPORT INFORMATION
  Report Type: Report from Study
  Country: GB (occurrence: GB)
  Receive Date: 20201001
  Receipt Date: 20201001
  Transmission Date: 20210113
  Serious: Yes (Other)
  Sender: FDA-Public Use
  Company Number: GB-AMGEN-GBRSL2020133161

PATIENT
  Age: 60 Year
  Sex: Female

DRUGS (1)
  1. AMGEVITA [Suspect]
     Active Substance: ADALIMUMAB
     Indication: JUVENILE IDIOPATHIC ARTHRITIS
     Dosage: 40 MILLIGRAM, Q2WK
     Route: 065
     Dates: end: 202009

REACTIONS (5)
  - Juvenile idiopathic arthritis [Unknown]
  - Dyspnoea [Unknown]
  - Therapeutic product effect decreased [Unknown]
  - Red blood cell count increased [Unknown]
  - SARS-CoV-2 test positive [Unknown]
